FAERS Safety Report 14676315 (Version 2)
Quarter: 2018Q2

REPORT INFORMATION
  Report Type: Report from Study
  Country: FR (occurrence: FR)
  Receive Date: 20180323
  Receipt Date: 20180402
  Transmission Date: 20180711
  Serious: Yes (Hospitalization, Other)
  Sender: FDA-Public Use
  Company Number: FR-GILEAD-2018-0327731

PATIENT
  Sex: Male
  Weight: 65 kg

DRUGS (13)
  1. CONTRAMAL [Concomitant]
     Active Substance: TRAMADOL HYDROCHLORIDE
  2. FUROSEMIDE. [Concomitant]
     Active Substance: FUROSEMIDE
  3. DAFALGAN [Concomitant]
     Active Substance: ACETAMINOPHEN
  4. TRAMADOL. [Concomitant]
     Active Substance: TRAMADOL
  5. ZELITREX [Concomitant]
     Active Substance: VALACYCLOVIR HYDROCHLORIDE
  6. MORPHINE HYDROCHLORIDE [Concomitant]
     Active Substance: MORPHINE HYDROCHLORIDE
  7. PARACETAMOL [Concomitant]
     Active Substance: ACETAMINOPHEN
  8. IDELALISIB [Suspect]
     Active Substance: IDELALISIB
     Indication: CHRONIC LYMPHOCYTIC LEUKAEMIA
     Dosage: 150 MG, BID
     Route: 048
     Dates: start: 20141002, end: 20150119
  9. LOW MOLECULAR WEIGHT HEPARIN [Concomitant]
     Active Substance: UNSPECIFIED INGREDIENT
  10. INNOHEP [Concomitant]
     Active Substance: TINZAPARIN SODIUM
  11. MABTHERA [Concomitant]
     Active Substance: RITUXIMAB
  12. DIFFU-K [Concomitant]
     Active Substance: POTASSIUM CHLORIDE
  13. ZOPICLONE [Concomitant]
     Active Substance: ZOPICLONE

REACTIONS (4)
  - Bronchopneumopathy [Recovered/Resolved]
  - Bronchitis [Recovered/Resolved]
  - Bronchopneumopathy [Recovered/Resolved]
  - Bronchopneumopathy [Recovered/Resolved]

NARRATIVE: CASE EVENT DATE: 20141030
